FAERS Safety Report 4363913-5 (Version None)
Quarter: 2004Q2

REPORT INFORMATION
  Report Type: 
  Country: None (occurrence: None)
  Receive Date: 20040524
  Receipt Date: 20040524
  Transmission Date: 20050107
  Serious: Yes (Hospitalization)
  Sender: FDA-Public Use
  Company Number: None

PATIENT
  Age: 43 Year
  Sex: Male
  Weight: 109.3 kg

DRUGS (7)
  1. CELEXA [Suspect]
  2. VALACYCLOVIR HCL [Concomitant]
  3. CITALOPRAM [Concomitant]
  4. FOLIC ACID [Concomitant]
  5. THIAMINE [Concomitant]
  6. QUETIAPINE FUMARATE [Concomitant]
  7. MULTIVITAMINS/ZINC (CENTRIUM) [Concomitant]

REACTIONS (2)
  - AGITATION [None]
  - NERVOUSNESS [None]
